FAERS Safety Report 15684920 (Version 1)
Quarter: 2018Q4

REPORT INFORMATION
  Report Type: Spontaneous
  Country: PK (occurrence: PK)
  Receive Date: 20181204
  Receipt Date: 20181204
  Transmission Date: 20190205
  Serious: Yes (Life-Threatening)
  Sender: FDA-Public Use
  Company Number: PK-LPDUSPRD-20181997

PATIENT
  Age: 35 Year
  Sex: Female
  Weight: 62 kg

DRUGS (1)
  1. FERINJECT [Suspect]
     Active Substance: FERRIC CARBOXYMALTOSE
     Dosage: 500 MG, 10 DROPS PER MINUTE
     Route: 041
     Dates: start: 20181018, end: 20181018

REACTIONS (10)
  - Dyspnoea [Recovered/Resolved]
  - Hyperventilation [Recovered/Resolved]
  - Tachycardia [Recovered/Resolved]
  - Erythema [Unknown]
  - Arrhythmia [Recovered/Resolved with Sequelae]
  - Flushing [Recovered/Resolved]
  - Headache [Recovered/Resolved]
  - Pruritus generalised [Unknown]
  - Respiratory distress [Recovered/Resolved with Sequelae]
  - Rash [Unknown]

NARRATIVE: CASE EVENT DATE: 20181018
